FAERS Safety Report 19837381 (Version 1)
Quarter: 2021Q3

REPORT INFORMATION
  Report Type: Spontaneous
  Country: ZA (occurrence: ZA)
  Receive Date: 20210915
  Receipt Date: 20210915
  Transmission Date: 20211014
  Serious: Yes (Other)
  Sender: FDA-Public Use
  Company Number: ZA-ASTRAZENECA-2021A719502

PATIENT

DRUGS (5)
  1. ASPAVOR 40 [Concomitant]
     Route: 048
  2. HOMOLOG MIX [Concomitant]
     Route: 058
  3. JALRA [Concomitant]
     Active Substance: VILDAGLIPTIN
     Route: 048
  4. TRI?PLAIN [Concomitant]
  5. FORXIGA [Suspect]
     Active Substance: DAPAGLIFLOZIN
     Dosage: 10.0MG ONCE/SINGLE ADMINISTRATION
     Route: 048

REACTIONS (1)
  - Renal impairment [Not Recovered/Not Resolved]
